FAERS Safety Report 6015003-3 (Version None)
Quarter: 2008Q4

REPORT INFORMATION
  Report Type: 
  Country: None (occurrence: None)
  Receive Date: 20081219
  Receipt Date: 20081212
  Transmission Date: 20090506
  Serious: Yes (Hospitalization)
  Sender: FDA-Public Use
  Company Number: JP-ALLERGAN-0816145US

PATIENT
  Sex: Male

DRUGS (6)
  1. BOTULINUM TOXIN TYPE A [Suspect]
     Indication: TORTICOLLIS
     Dosage: 28 UNITS, SINGLE
     Route: 030
     Dates: start: 20070420, end: 20070420
  2. BOTULINUM TOXIN TYPE A [Suspect]
     Dosage: 18 UNITS, SINGLE
     Route: 030
     Dates: start: 20061214, end: 20061214
  3. PHENOBARBITAL [Concomitant]
     Indication: EPILEPSY
     Dosage: 30 MG, QD
     Route: 048
  4. CLONAZEPAM [Concomitant]
     Indication: EPILEPSY
     Dosage: 0.5 MG, QD
     Route: 048
  5. BACLOFEN [Concomitant]
     Indication: HYPERTONIA
     Dosage: 5 MG, QD
  6. EPERISONE HYDROCHLORIDE [Concomitant]
     Indication: HYPERTONIA
     Dosage: 30 MG, QD

REACTIONS (3)
  - LIVER DISORDER [None]
  - PNEUMONIA ASPIRATION [None]
  - RESPIRATORY FAILURE [None]
